FAERS Safety Report 14915955 (Version 2)
Quarter: 2018Q2

REPORT INFORMATION
  Report Type: Report from Study
  Country: CA (occurrence: CA)
  Receive Date: 20180518
  Receipt Date: 20180524
  Transmission Date: 20180711
  Serious: Yes (Other)
  Sender: FDA-Public Use
  Company Number: CA-JNJFOC-20180513612

PATIENT
  Sex: Male

DRUGS (1)
  1. TREMFYA [Suspect]
     Active Substance: GUSELKUMAB
     Indication: PSORIASIS
     Dosage: STRENGTH = 100 MG
     Route: 058

REACTIONS (3)
  - Palpitations [Recovered/Resolved]
  - Diarrhoea [Recovered/Resolved]
  - Feeling hot [Recovered/Resolved]
